FAERS Safety Report 10027655 (Version 2)
Quarter: 2014Q1

REPORT INFORMATION
  Report Type: Spontaneous
  Country: US (occurrence: US)
  Receive Date: 20140321
  Receipt Date: 20140328
  Transmission Date: 20141002
  Serious: Yes (Death)
  Sender: FDA-Public Use
  Company Number: US-009507513-1403USA007961

PATIENT
  Age: 49 Year
  Sex: Female

DRUGS (5)
  1. TEMODAR [Suspect]
     Indication: NEOPLASM MALIGNANT
     Dosage: 350 MG, UNK
     Route: 048
  2. XELODA [Concomitant]
  3. GABAPENTIN [Concomitant]
  4. MORPHINE [Concomitant]
  5. IBUPROFEN [Concomitant]

REACTIONS (2)
  - Death [Fatal]
  - Oedema peripheral [Unknown]
